FAERS Safety Report 6722286-0 (Version None)
Quarter: 2010Q2

REPORT INFORMATION
  Report Type: 
  Country: None (occurrence: None)
  Receive Date: 20100505
  Receipt Date: 20100208
  Transmission Date: 20101027
  Serious: No
  Sender: FDA-Public Use
  Company Number: WAES 1002USA01281

PATIENT
  Age: 40 Year
  Sex: Female

DRUGS (2)
  1. ISENTRESS [Suspect]
     Indication: HIV INFECTION
     Dosage: BID/PO
     Route: 048
     Dates: start: 20100108
  2. TRUVADA [Concomitant]

REACTIONS (2)
  - HEADACHE [None]
  - MYALGIA [None]
